FAERS Safety Report 9068274 (Version 2)
Quarter: 2013Q1

REPORT INFORMATION
  Report Type: Spontaneous
  Country: US (occurrence: US)
  Receive Date: 20130206
  Receipt Date: 20130327
  Transmission Date: 20140127
  Serious: Yes (Other)
  Sender: FDA-Public Use
  Company Number: US-ASTRAZENECA-2013SE07093

PATIENT
  Sex: Female

DRUGS (3)
  1. NEXIUM [Suspect]
     Indication: GASTRIC ULCER
     Route: 048
     Dates: end: 2012
  2. NEXIUM [Suspect]
     Indication: GASTRIC ULCER
     Dosage: GENERIC
     Route: 048
  3. RANITIDINE [Concomitant]
     Indication: GASTRIC ULCER

REACTIONS (3)
  - Ulcer haemorrhage [Unknown]
  - Intentional drug misuse [Unknown]
  - Off label use [Unknown]
